FAERS Safety Report 7305369-6 (Version None)
Quarter: 2011Q1

REPORT INFORMATION
  Report Type: 
  Country: None (occurrence: None)
  Receive Date: 20110222
  Receipt Date: 20110211
  Transmission Date: 20110831
  Serious: Yes (Hospitalization, Other)
  Sender: FDA-Public Use
  Company Number: PHHY2011DE11955

PATIENT
  Sex: Female
  Weight: 64 kg

DRUGS (12)
  1. TORSEMIDE [Concomitant]
     Dosage: 20 MG, QD
     Route: 048
     Dates: start: 20060101
  2. BETA BLOCKING AGENTS [Concomitant]
  3. ACE INHIBITOR NOS [Concomitant]
     Dates: start: 20100506
  4. LANTUS [Concomitant]
     Dosage: 24 IU, QD
     Route: 058
     Dates: start: 20050101
  5. PLATELET AGGREGATION INHIBITOR FROM NSAID GROUP [Concomitant]
  6. ALISKIREN [Suspect]
     Dosage: 1 DF, QD
     Route: 048
     Dates: start: 20081013, end: 20100506
  7. BISO-PUREN [Concomitant]
     Indication: HYPERTENSION
     Dosage: 15 MG, QD
     Route: 048
     Dates: start: 20090715
  8. ORAL ANTIDIABETICS [Concomitant]
  9. ANTICOAGULANTS [Concomitant]
     Route: 048
  10. RAMIPRIL DURA PLUS [Concomitant]
     Indication: HYPERTENSION
     Dosage: 5/25MG QD
     Route: 048
     Dates: start: 20080413
  11. BISO-PUREN [Concomitant]
     Indication: ATRIAL FIBRILLATION
  12. CARMEN [Concomitant]
     Indication: HYPERTENSION
     Dosage: 20 MG, QD
     Route: 048
     Dates: start: 20060101

REACTIONS (4)
  - HYPERTENSION [None]
  - PNEUMONIA [None]
  - LEFT VENTRICULAR HYPERTROPHY [None]
  - ATRIAL FIBRILLATION [None]
